FAERS Safety Report 9767306 (Version 2)
Quarter: 2015Q2

REPORT INFORMATION
  Report Type: Spontaneous
  Country: US (occurrence: US)
  Receive Date: 20131217
  Receipt Date: 20150429
  Transmission Date: 20150821
  Serious: Yes (Disabling, Congenital Anomaly, Other)
  Sender: FDA-Public Use
  Company Number: US-ELI_LILLY_AND_COMPANY-US201312003326

PATIENT

DRUGS (1)
  1. PROZAC [Suspect]
     Active Substance: FLUOXETINE HYDROCHLORIDE
     Indication: PRODUCT USED FOR UNKNOWN INDICATION
     Dosage: 1 DF, UNKNOWN
     Route: 064

REACTIONS (6)
  - Cleft palate [Unknown]
  - Deafness [Unknown]
  - Foetal exposure timing unspecified [Unknown]
  - Cleft lip [Unknown]
  - Otitis media chronic [Unknown]
  - Eustachian tube dysfunction [Unknown]
